FAERS Safety Report 14851907 (Version 1)
Quarter: 2018Q2

REPORT INFORMATION
  Report Type: Spontaneous
  Country: US (occurrence: US)
  Receive Date: 20180420
  Receipt Date: 20180420
  Transmission Date: 20180711
  Serious: Yes (Disabling, Other)
  Sender: FDA-Public Use
  Company Number: None

PATIENT
  Age: 23 Year
  Sex: Female
  Weight: 71.55 kg

DRUGS (1)
  1. TUBERCULIN NOS [Suspect]
     Active Substance: TUBERCULIN PURIFIED PROTEIN DERIVATIVE
     Indication: TUBERCULIN TEST
     Dosage: ?          QUANTITY:1 INJECTION(S);?
     Route: 058

REACTIONS (8)
  - Pain [None]
  - Chest pain [None]
  - Lung disorder [None]
  - Abdominal discomfort [None]
  - Feeling abnormal [None]
  - Cardiac disorder [None]
  - Malaise [None]
  - Dyspnoea [None]

NARRATIVE: CASE EVENT DATE: 20180419
